FAERS Safety Report 5337307-X (Version None)
Quarter: 2007Q2

REPORT INFORMATION
  Report Type: 
  Country: None (occurrence: None)
  Receive Date: 20070529
  Receipt Date: 20070517
  Transmission Date: 20071010
  Serious: Yes (Hospitalization, Other)
  Sender: FDA-Public Use
  Company Number: US-PFIZER INC-2007040407

PATIENT
  Sex: Male
  Weight: 87.1 kg

DRUGS (14)
  1. CHANTIX [Suspect]
     Indication: SMOKING CESSATION THERAPY
     Dates: start: 20070512, end: 20070513
  2. PLAVIX [Concomitant]
  3. TOPROL-XL [Concomitant]
  4. PREVACID [Concomitant]
  5. FOLIC ACID [Concomitant]
  6. ALTACE [Concomitant]
  7. LIPITOR [Concomitant]
  8. ACETYLSALICYLIC ACID SRT [Concomitant]
  9. ADVAIR DISKUS 100/50 [Concomitant]
  10. ZETIA [Concomitant]
  11. BENADRYL [Concomitant]
  12. STOOL SOFTENER [Concomitant]
  13. LEXAPRO [Concomitant]
  14. XANAX [Concomitant]

REACTIONS (3)
  - BACK PAIN [None]
  - CHEST PAIN [None]
  - INTERVERTEBRAL DISC DEGENERATION [None]
